FAERS Safety Report 4945001-X (Version None)
Quarter: 2006Q1

REPORT INFORMATION
  Report Type: 
  Country: None (occurrence: None)
  Receive Date: 20060117
  Receipt Date: 20050728
  Transmission Date: 20060701
  Serious: Yes (Hospitalization)
  Sender: FDA-Public Use
  Company Number: A03200502296

PATIENT
  Sex: Male

DRUGS (6)
  1. PLAVIX [Suspect]
     Dosage: ORAL
     Route: 048
  2. GLIMEPIRIDE [Concomitant]
  3. GLYBURIDE [Concomitant]
  4. LANSOPRAZOLE [Concomitant]
  5. ACETYLSALICYLIC ACID SRT [Concomitant]
  6. CAPTOPRIL [Concomitant]

REACTIONS (5)
  - CONTUSION [None]
  - LOSS OF CONSCIOUSNESS [None]
  - RASH [None]
  - SPLENOMEGALY [None]
  - THROMBOCYTOPENIA [None]
